FAERS Safety Report 9779795 (Version 2)
Quarter: 2014Q1

REPORT INFORMATION
  Report Type: Spontaneous
  Country: FR (occurrence: FR)
  Receive Date: 20131223
  Receipt Date: 20140217
  Transmission Date: 20141002
  Serious: Yes (Hospitalization)
  Sender: FDA-Public Use
  Company Number: FR-GLAXOSMITHKLINE-B0952176A

PATIENT
  Age: 79 Year
  Sex: Female

DRUGS (4)
  1. LAMICTAL [Suspect]
     Indication: PARTIAL SEIZURES
     Route: 048
     Dates: start: 20131028, end: 20131128
  2. URBANYL [Suspect]
     Indication: PARTIAL SEIZURES
     Route: 048
     Dates: start: 20131028, end: 20131120
  3. MODOPAR [Concomitant]
     Indication: PRODUCT USED FOR UNKNOWN INDICATION
     Dosage: 312.5MG PER DAY
     Route: 048
  4. SIMVASTATIN [Concomitant]
     Indication: PRODUCT USED FOR UNKNOWN INDICATION
     Dosage: 20MG PER DAY
     Route: 048

REACTIONS (9)
  - Urinary retention [Recovered/Resolved]
  - Confusional state [Recovered/Resolved]
  - General physical health deterioration [Unknown]
  - Bedridden [Unknown]
  - Memory impairment [Unknown]
  - Disorientation [Recovered/Resolved]
  - Dehydration [Unknown]
  - Bladder dilatation [Unknown]
  - Urinary tract infection [Unknown]
